FAERS Safety Report 15282324 (Version 1)
Quarter: 2018Q3

REPORT INFORMATION
  Report Type: Spontaneous
  Country: PL (occurrence: PL)
  Receive Date: 20180816
  Receipt Date: 20180816
  Transmission Date: 20181010
  Serious: Yes (Other)
  Sender: FDA-Public Use
  Company Number: PL-ROCHE-2168394

PATIENT
  Age: 66 Year
  Sex: Female

DRUGS (6)
  1. RITUXIMAB. [Suspect]
     Active Substance: RITUXIMAB
     Indication: RICHTER^S SYNDROME
     Dosage: UNK UNK, QW
     Route: 041
     Dates: start: 20180202, end: 20180223
  2. IBRUTINIB [Concomitant]
     Active Substance: IBRUTINIB
     Indication: RICHTER^S SYNDROME
     Dosage: UNK
     Route: 065
  3. RITUXIMAB. [Suspect]
     Active Substance: RITUXIMAB
     Dosage: UNK
     Route: 041
  4. CISPLATIN. [Suspect]
     Active Substance: CISPLATIN
     Indication: RICHTER^S SYNDROME
     Dosage: UNK
     Route: 065
  5. DEXAMETHASONE. [Suspect]
     Active Substance: DEXAMETHASONE
     Indication: RICHTER^S SYNDROME
     Dosage: UNK
     Route: 065
  6. GEMCITABINE [Suspect]
     Active Substance: GEMCITABINE\GEMCITABINE HYDROCHLORIDE
     Indication: RICHTER^S SYNDROME
     Dosage: UNK
     Route: 065

REACTIONS (5)
  - Metastases to pelvis [Unknown]
  - Malignant neoplasm progression [Unknown]
  - Richter^s syndrome [Unknown]
  - Metastases to neck [Unknown]
  - Metastases to lymph nodes [Unknown]
